FAERS Safety Report 15612420 (Version 3)
Quarter: 2019Q1

REPORT INFORMATION
  Report Type: Spontaneous
  Country: CA (occurrence: CA)
  Receive Date: 20181113
  Receipt Date: 20190125
  Transmission Date: 20190417
  Serious: Yes (Disabling, Other)
  Sender: FDA-Public Use
  Company Number: CA-ASTRAZENECA-2018SF47384

PATIENT
  Age: 52 Year
  Sex: Male
  Weight: 77.1 kg

DRUGS (4)
  1. STATINS [Concomitant]
     Active Substance: UNSPECIFIED INGREDIENT
  2. CRESTOR [Suspect]
     Active Substance: ROSUVASTATIN CALCIUM
     Route: 048
     Dates: end: 20081123
  3. CRESTOR [Suspect]
     Active Substance: ROSUVASTATIN CALCIUM
     Route: 048
     Dates: start: 20170512, end: 20181115
  4. LIPITOR [Concomitant]
     Active Substance: ATORVASTATIN CALCIUM

REACTIONS (14)
  - Dyspnoea [Not Recovered/Not Resolved]
  - Tendon rupture [Not Recovered/Not Resolved]
  - Nerve injury [Not Recovered/Not Resolved]
  - Muscular weakness [Unknown]
  - Sleep apnoea syndrome [Recovering/Resolving]
  - Muscle atrophy [Unknown]
  - Visual impairment [Unknown]
  - Depressed mood [Not Recovered/Not Resolved]
  - Oropharyngeal pain [Unknown]
  - Weight decreased [Unknown]
  - Deafness [Recovering/Resolving]
  - Muscle injury [Unknown]
  - Abdominal discomfort [Not Recovered/Not Resolved]
  - Gastrooesophageal reflux disease [Unknown]

NARRATIVE: CASE EVENT DATE: 2016
